FAERS Safety Report 11495854 (Version 1)
Quarter: 2015Q3

REPORT INFORMATION
  Report Type: Spontaneous
  Country: US (occurrence: US)
  Receive Date: 20150911
  Receipt Date: 20150911
  Transmission Date: 20151125
  Serious: No
  Sender: FDA-Public Use
  Company Number: US-BAYER-2015-403824

PATIENT
  Age: 60 Year
  Sex: Male

DRUGS (3)
  1. TESTOSTERON [Concomitant]
     Active Substance: TESTOSTERONE
     Dosage: 200 MG, UNK
  2. LEVITRA [Suspect]
     Active Substance: VARDENAFIL HYDROCHLORIDE TRIHYDRATE
     Indication: BLOOD TESTOSTERONE DECREASED
     Dosage: 10 MG, UNK
     Route: 048
  3. LEVITRA [Suspect]
     Active Substance: VARDENAFIL HYDROCHLORIDE TRIHYDRATE
     Indication: BLOOD TESTOSTERONE DECREASED
     Dosage: 20 MG, OW
     Route: 048
     Dates: start: 2013, end: 201508

REACTIONS (1)
  - Drug ineffective [Not Recovered/Not Resolved]

NARRATIVE: CASE EVENT DATE: 20150814
